FAERS Safety Report 18586775 (Version 1)
Quarter: 2020Q4

REPORT INFORMATION
  Report Type: Spontaneous
  Country: US (occurrence: US)
  Receive Date: 20201207
  Receipt Date: 20201207
  Transmission Date: 20210114
  Serious: Yes (Other)
  Sender: FDA-Public Use
  Company Number: US-TEVA-2020-US-1856388

PATIENT
  Age: 71 Year
  Sex: Female

DRUGS (2)
  1. OXYCODONE WITH ACETAMINOPHEN [Concomitant]
     Active Substance: ACETAMINOPHEN\OXYCODONE HYDROCHLORIDE
     Indication: PAIN
  2. CLONAZEPAM. [Suspect]
     Active Substance: CLONAZEPAM
     Dosage: 4 MILLIGRAM DAILY;
     Route: 065

REACTIONS (2)
  - Metastases to bone [Unknown]
  - Lung neoplasm malignant [Unknown]
